FAERS Safety Report 5823315-9 (Version None)
Quarter: 2008Q3

REPORT INFORMATION
  Report Type: 
  Country: None (occurrence: None)
  Receive Date: 20080725
  Receipt Date: 20070618
  Transmission Date: 20090109
  Serious: No
  Sender: FDA-Public Use
  Company Number: US-AMGEN-KDL225770

PATIENT
  Sex: Male
  Weight: 79.5 kg

DRUGS (11)
  1. PROCRIT [Suspect]
     Indication: RENAL FAILURE CHRONIC
     Route: 058
     Dates: start: 20070401, end: 20070401
  2. LIPITOR [Concomitant]
  3. PRILOSEC [Concomitant]
  4. LISINOPRIL [Concomitant]
  5. POTASSIUM CHLORIDE [Concomitant]
  6. PLAVIX [Concomitant]
  7. ARICEPT [Concomitant]
  8. FUROSEMIDE [Concomitant]
  9. MEMANTINE HCL [Concomitant]
  10. ALFUZOSIN HCL [Concomitant]
  11. VITAMINS NOS [Concomitant]

REACTIONS (5)
  - DIARRHOEA [None]
  - FATIGUE [None]
  - MALAISE [None]
  - NAUSEA [None]
  - VOMITING [None]
